FAERS Safety Report 9719858 (Version 2)
Quarter: 2013Q4

REPORT INFORMATION
  Report Type: Spontaneous
  Country: IT (occurrence: IT)
  Receive Date: 20131128
  Receipt Date: 20131206
  Transmission Date: 20140711
  Serious: Yes (Disabling)
  Sender: FDA-Public Use
  Company Number: IT-ASTRAZENECA-2013SE85473

PATIENT
  Age: 32894 Day
  Sex: Female
  Weight: 37 kg

DRUGS (8)
  1. SEROQUEL [Suspect]
     Indication: DEMENTIA ALZHEIMER^S TYPE
     Dosage: 25 MG MORNING, 25 MG AFTERNOON AND 50 MG EVENING (100 MG DAILY)
     Route: 048
     Dates: start: 20110705
  2. SEROQUEL [Suspect]
     Indication: ABNORMAL BEHAVIOUR
     Dosage: 25 MG MORNING, 25 MG AFTERNOON AND 50 MG EVENING (100 MG DAILY)
     Route: 048
     Dates: start: 20110705
  3. LANSOPRAZOLE [Concomitant]
     Dosage: 15
  4. IRON [Concomitant]
  5. EUTIROX [Concomitant]
     Dosage: 75 / 50 MCG EVERY OTHER DAY
  6. EBIXA [Concomitant]
  7. ASPIRINETTA [Concomitant]
  8. ASA [Concomitant]

REACTIONS (8)
  - Gait disturbance [Recovered/Resolved with Sequelae]
  - Ischaemic stroke [Recovered/Resolved with Sequelae]
  - Hemiparesis [Recovered/Resolved]
  - Facial paresis [Recovered/Resolved]
  - Dysphagia [Recovered/Resolved with Sequelae]
  - Dysarthria [Recovered/Resolved with Sequelae]
  - Vertigo [Recovered/Resolved]
  - Dizziness [Recovered/Resolved]
